FAERS Safety Report 20855138 (Version 2)
Quarter: 2022Q2

REPORT INFORMATION
  Report Type: Spontaneous
  Country: US (occurrence: US)
  Receive Date: 20220520
  Receipt Date: 20220613
  Transmission Date: 20220721
  Serious: Yes (Other)
  Sender: FDA-Public Use
  Company Number: US-PFIZER INC-202200696326

PATIENT
  Age: 42 Year
  Sex: Male
  Weight: 92.99 kg

DRUGS (2)
  1. SOMAVERT [Suspect]
     Active Substance: PEGVISOMANT
     Indication: Acromegaly
     Dosage: 40 MG, DAILY (20MG TWO INJECTIONS NIGHTLY TO EQUAL 40MG)
  2. SANDOSTATIN [Concomitant]
     Active Substance: OCTREOTIDE ACETATE
     Indication: Growth hormone deficiency
     Dosage: 20 MG (20MG ONCE MONTHLY INJECTION)
     Dates: start: 20210707

REACTIONS (3)
  - Neoplasm recurrence [Unknown]
  - Product dose omission issue [Not Recovered/Not Resolved]
  - Frustration tolerance decreased [Unknown]

NARRATIVE: CASE EVENT DATE: 20220101
